FAERS Safety Report 17989042 (Version 2)
Quarter: 2020Q3

REPORT INFORMATION
  Report Type: Spontaneous
  Country: FR (occurrence: FR)
  Receive Date: 20200707
  Receipt Date: 20200710
  Transmission Date: 20201103
  Serious: Yes (Life-Threatening, Hospitalization)
  Sender: FDA-Public Use
  Company Number: FR-PFIZER INC-2006032615

PATIENT
  Age: 45 Year
  Sex: Female

DRUGS (2)
  1. SALAZOPYRIN [Suspect]
     Active Substance: SULFASALAZINE
     Indication: ARTHRALGIA
     Dosage: 1.5G/DAY (3 TABLETS PER DAY)
     Route: 065
  2. SALAZOPYRIN [Suspect]
     Active Substance: SULFASALAZINE
     Indication: ARTHRALGIA

REACTIONS (2)
  - Human herpesvirus 6 infection [Recovered/Resolved]
  - Drug reaction with eosinophilia and systemic symptoms [Recovered/Resolved]
